FAERS Safety Report 24344186 (Version 1)
Quarter: 2024Q3

REPORT INFORMATION
  Report Type: Spontaneous
  Country: US (occurrence: None)
  Receive Date: 20240919
  Receipt Date: 20240919
  Transmission Date: 20241017
  Serious: Yes (Other)
  Sender: Public
  Company Number: None

PATIENT
  Age: 31 Year
  Sex: Female
  Weight: 57.6 kg

DRUGS (3)
  1. NURTEC ODT [Suspect]
     Active Substance: RIMEGEPANT SULFATE
     Indication: Migraine
     Dates: start: 20230401
  2. MAGNESIUM [Concomitant]
     Active Substance: MAGNESIUM
  3. RIBOFLAVIN [Concomitant]
     Active Substance: RIBOFLAVIN

REACTIONS (16)
  - Insomnia [None]
  - Palpitations [None]
  - Feeling abnormal [None]
  - Heart rate increased [None]
  - Blood pressure increased [None]
  - Musculoskeletal stiffness [None]
  - Musculoskeletal stiffness [None]
  - Musculoskeletal stiffness [None]
  - Anxiety [None]
  - Pallor [None]
  - Burning sensation [None]
  - Loss of personal independence in daily activities [None]
  - Gastrooesophageal reflux disease [None]
  - Abdominal pain upper [None]
  - Gait disturbance [None]
  - Asthenia [None]

NARRATIVE: CASE EVENT DATE: 20230619
